FAERS Safety Report 5838480-7 (Version None)
Quarter: 2008Q3

REPORT INFORMATION
  Report Type: 
  Country: None (occurrence: None)
  Receive Date: 20080808
  Receipt Date: 20080730
  Transmission Date: 20090109
  Serious: Yes (Life-Threatening, Hospitalization, Other)
  Sender: FDA-Public Use
  Company Number: US-BAYER-200829604NA

PATIENT
  Age: 76 Year
  Sex: Female
  Weight: 60 kg

DRUGS (3)
  1. ULTRAVIST 300 [Suspect]
     Indication: COMPUTERISED TOMOGRAM THORAX
     Dosage: TOTAL DAILY DOSE: 100 ML  UNIT DOSE: 100 ML
     Route: 042
     Dates: start: 20080711, end: 20080711
  2. READI-CAT [Concomitant]
     Route: 048
     Dates: start: 20080710, end: 20080710
  3. READI-CAT [Concomitant]
     Route: 048
     Dates: start: 20080711, end: 20080711

REACTIONS (4)
  - DIZZINESS [None]
  - NAUSEA [None]
  - PARAESTHESIA [None]
  - UNRESPONSIVE TO STIMULI [None]
